FAERS Safety Report 21257912 (Version 1)
Quarter: 2022Q3

REPORT INFORMATION
  Report Type: Spontaneous
  Country: US (occurrence: None)
  Receive Date: 20220825
  Receipt Date: 20220825
  Transmission Date: 20221027
  Serious: Yes (Hospitalization)
  Sender: FDA-Public Use
  Company Number: None

PATIENT
  Sex: Male

DRUGS (4)
  1. EPOGEN [Suspect]
     Active Substance: ERYTHROPOIETIN
     Indication: Chronic kidney disease
     Dosage: OTHER QUANTITY : 10000 UNIT/ML;?FREQUENCY : WEEKLY;?OTHER ROUTE : INJECTION;?
     Route: 050
     Dates: start: 20220723
  2. EPOGEN [Suspect]
     Active Substance: ERYTHROPOIETIN
     Dosage: FREQUENCY : WEEKLY;?
     Route: 058
  3. FERROUS SULFATE [Concomitant]
     Active Substance: FERROUS SULFATE
  4. SODIUM BICAR [Concomitant]

REACTIONS (2)
  - Paravalvular regurgitation [None]
  - Oedema [None]
